FAERS Safety Report 24193933 (Version 1)
Quarter: 2024Q3

REPORT INFORMATION
  Report Type: Spontaneous
  Country: JP (occurrence: JP)
  Receive Date: 20240809
  Receipt Date: 20240809
  Transmission Date: 20241017
  Serious: Yes (Other)
  Sender: REGENERON
  Company Number: JP-BAYER-2024A089016

PATIENT
  Age: 80 Year
  Sex: Male

DRUGS (3)
  1. EYLEA [Suspect]
     Active Substance: AFLIBERCEPT
     Indication: Age-related macular degeneration
     Dosage: LEFT EYE, SOLUTION FOR INJECTION IN PRE-FILLED SYRINGE, 40 MG/ML
  2. EYLEA HD [Suspect]
     Active Substance: AFLIBERCEPT
     Indication: Age-related macular degeneration
     Dosage: LEFT EYE, SOLUTION FOR INJECTION, 1114.3 MG/ML
     Dates: start: 20240610
  3. TRIAMCINOLONE [Concomitant]
     Active Substance: TRIAMCINOLONE
     Indication: Product used for unknown indication

REACTIONS (2)
  - Vitreous haemorrhage [Not Recovered/Not Resolved]
  - Therapeutic product effect incomplete [Unknown]

NARRATIVE: CASE EVENT DATE: 20240610
